FAERS Safety Report 22868256 (Version 3)
Quarter: 2023Q4

REPORT INFORMATION
  Report Type: Spontaneous
  Country: US (occurrence: US)
  Receive Date: 20230825
  Receipt Date: 20231208
  Transmission Date: 20240110
  Serious: No
  Sender: FDA-Public Use
  Company Number: US-Blueprint Medicines Corporation-1392

PATIENT
  Sex: Female

DRUGS (3)
  1. AYVAKIT [Suspect]
     Active Substance: AVAPRITINIB
     Indication: Systemic mastocytosis
     Route: 065
     Dates: start: 20230805
  2. AYVAKIT [Suspect]
     Active Substance: AVAPRITINIB
     Indication: Diffuse cutaneous mastocytosis
     Route: 065
     Dates: start: 20230805
  3. AYVAKIT [Suspect]
     Active Substance: AVAPRITINIB
     Route: 065
     Dates: start: 20230805

REACTIONS (8)
  - Paraesthesia [Unknown]
  - Hypoaesthesia [Unknown]
  - Taste disorder [Unknown]
  - Eye swelling [Unknown]
  - Lacrimation increased [Unknown]
  - Dyspepsia [Unknown]
  - Feeling hot [Unknown]
  - Weight increased [Unknown]
